FAERS Safety Report 10883112 (Version 1)
Quarter: 2015Q1

REPORT INFORMATION
  Report Type: Report from Study
  Country: UY (occurrence: UY)
  Receive Date: 20150303
  Receipt Date: 20150303
  Transmission Date: 20150721
  Serious: Yes (Hospitalization, Other)
  Sender: FDA-Public Use
  Company Number: UY-ASTELLAS-2015US006241

PATIENT
  Sex: Female

DRUGS (1)
  1. ERLOTINIB [Suspect]
     Active Substance: ERLOTINIB
     Indication: LUNG NEOPLASM MALIGNANT
     Dosage: UNK, UNKNOWN FREQ.
     Route: 048
     Dates: start: 201408

REACTIONS (5)
  - Pleural effusion [Unknown]
  - Localised infection [Unknown]
  - Rash [Unknown]
  - Lung neoplasm malignant [Unknown]
  - Neoplasm [Unknown]
